FAERS Safety Report 26085719 (Version 1)
Quarter: 2025Q4

REPORT INFORMATION
  Report Type: Spontaneous
  Country: CN (occurrence: CN)
  Receive Date: 20251125
  Receipt Date: 20251125
  Transmission Date: 20260117
  Serious: Yes (Other)
  Sender: NUVATION BIO
  Company Number: CN-NUVATION BIO INC.-2025NUV000324

PATIENT
  Age: 73 Year
  Sex: Female
  Weight: 65 kg

DRUGS (2)
  1. TALETRECTINIB ADIPATE [Suspect]
     Active Substance: TALETRECTINIB ADIPATE
     Indication: Non-small cell lung cancer
     Dosage: 600 MILLIGRAM, QD
     Dates: start: 20251031, end: 202511
  2. TALETRECTINIB ADIPATE [Suspect]
     Active Substance: TALETRECTINIB ADIPATE
     Dosage: 200 MILLIGRAM, QD
     Dates: start: 202511, end: 20251113

REACTIONS (9)
  - Rash erythematous [Recovered/Resolved]
  - Gait disturbance [Recovered/Resolved]
  - Swelling face [Recovered/Resolved]
  - Erythema [Recovered/Resolved]
  - Muscular weakness [Recovered/Resolved]
  - Pain in extremity [Recovered/Resolved]
  - Myalgia [Recovered/Resolved]
  - Oedema peripheral [Recovered/Resolved]
  - Neuralgia [Recovered/Resolved]

NARRATIVE: CASE EVENT DATE: 20251113
